FAERS Safety Report 6649191-2 (Version None)
Quarter: 2010Q1

REPORT INFORMATION
  Report Type: 
  Country: None (occurrence: None)
  Receive Date: 20100324
  Receipt Date: 20100311
  Transmission Date: 20100710
  Serious: Yes (Other)
  Sender: FDA-Public Use
  Company Number: B0639137A

PATIENT
  Age: 25 Year
  Sex: Male

DRUGS (3)
  1. LAMOTRIGINE [Suspect]
     Indication: EPILEPSY
     Route: 048
  2. LYRICA [Concomitant]
     Indication: EPILEPSY
     Dosage: 300MG PER DAY
     Route: 048
  3. PERICYAZINE [Concomitant]
     Indication: ANXIETY
     Route: 048
     Dates: start: 20010101

REACTIONS (1)
  - PYREXIA [None]
